FAERS Safety Report 8911656 (Version 1)
Quarter: 2012Q4

REPORT INFORMATION
  Report Type: 
  Country: CH (occurrence: CH)
  Receive Date: 20121115
  Receipt Date: 20121115
  Transmission Date: 20130627
  Serious: Yes (Hospitalization)
  Sender: FDA-Public Use
  Company Number: CH-ROCHE-1133864

PATIENT
  Age: 87 Year
  Sex: Male

DRUGS (7)
  1. TOREM [Suspect]
     Indication: PRODUCT USED FOR UNKNOWN INDICATION
     Route: 048
  2. TILUR [Interacting]
     Indication: PRODUCT USED FOR UNKNOWN INDICATION
     Dosage: long term treatment
     Route: 048
  3. PLAVIX [Interacting]
     Indication: MYOCARDIAL ISCHAEMIA
     Route: 048
  4. ENALAPRIL [Interacting]
     Indication: PRODUCT USED FOR UNKNOWN INDICATION
     Route: 048
  5. CORVATON [Concomitant]
     Route: 048
  6. SIFROL [Concomitant]
     Route: 048
  7. NITROGLYCERIN [Concomitant]
     Indication: CHEST PAIN
     Dosage: as required
     Route: 060

REACTIONS (5)
  - Renal failure acute [Recovering/Resolving]
  - Gastrointestinal haemorrhage [Recovered/Resolved]
  - Melaena [Recovered/Resolved]
  - Anaemia [Recovering/Resolving]
  - Drug interaction [Unknown]
